FAERS Safety Report 5614292-4 (Version None)
Quarter: 2008Q1

REPORT INFORMATION
  Report Type: 
  Country: None (occurrence: None)
  Receive Date: 20080130
  Receipt Date: 20080114
  Transmission Date: 20080703
  Serious: Yes (Hospitalization)
  Sender: FDA-Public Use
  Company Number: DSA_31353_2008

PATIENT
  Sex: Female

DRUGS (5)
  1. DILTIAZEM HYDROCHLORIDE [Suspect]
     Indication: DRUG USE FOR UNKNOWN INDICATION
     Dosage: (1 DF QD 1 DF ORAL)
     Route: 048
     Dates: start: 20071125, end: 20071207
  2. PLAVIX [Suspect]
     Indication: DRUG USE FOR UNKNOWN INDICATION
     Dosage: (75 MG QD ORAL)
     Route: 048
     Dates: start: 20071125, end: 20071207
  3. LASILIX /00032601/ [Concomitant]
  4. LIPANTHYL [Concomitant]
  5. DIAMICRON [Concomitant]

REACTIONS (1)
  - TOXIC SKIN ERUPTION [None]
